FAERS Safety Report 6585374-8 (Version None)
Quarter: 2010Q1

REPORT INFORMATION
  Report Type: 
  Country: None (occurrence: None)
  Receive Date: 20100217
  Receipt Date: 20100209
  Transmission Date: 20100710
  Serious: Yes (Life-Threatening, Hospitalization)
  Sender: FDA-Public Use
  Company Number: JP-BAYER-200912394BYL

PATIENT
  Age: 88 Year
  Sex: Male
  Weight: 56 kg

DRUGS (23)
  1. NEXAVAR [Suspect]
     Indication: RENAL CELL CARCINOMA
     Dosage: TOTAL DAILY DOSE: 800 MG  UNIT DOSE: 200 MG
     Route: 048
     Dates: start: 20090424, end: 20090427
  2. NEXAVAR [Suspect]
     Dosage: UNIT DOSE: 200 MG
     Route: 048
     Dates: start: 20090501, end: 20090707
  3. NEXAVAR [Suspect]
     Dosage: UNIT DOSE: 200 MG
     Route: 048
     Dates: start: 20090805, end: 20090901
  4. NEXAVAR [Suspect]
     Dosage: UNIT DOSE: 200 MG
     Route: 048
     Dates: start: 20090910, end: 20090925
  5. NEXAVAR [Suspect]
     Route: 048
     Dates: end: 20091130
  6. NEXAVAR [Suspect]
     Dosage: UNIT DOSE: 200 MG
     Route: 048
     Dates: start: 20091016, end: 20091030
  7. ZYLORIC [Concomitant]
     Route: 048
     Dates: start: 20090413
  8. AMLODIPINE [Concomitant]
     Route: 048
     Dates: start: 20090413
  9. ARTIST [Concomitant]
     Route: 048
     Dates: start: 20090413
  10. LASIX [Concomitant]
     Route: 048
     Dates: start: 20090413
  11. TAGAMET [Concomitant]
     Route: 048
     Dates: start: 20090413
  12. BUP-4 [Concomitant]
     Route: 048
     Dates: start: 20090413
  13. ASPIRIN [Concomitant]
     Dosage: UNIT DOSE: 100 MG
     Route: 048
     Dates: start: 20090413
  14. NEUROVITAN [Concomitant]
     Route: 048
     Dates: start: 20090413
  15. JUVELA [Concomitant]
     Route: 048
     Dates: start: 20090413
  16. PURSENNID [Concomitant]
     Route: 048
     Dates: start: 20090413
  17. MYSLEE [Concomitant]
     Route: 048
     Dates: start: 20090504
  18. MOBIC [Concomitant]
     Route: 048
     Dates: start: 20090609
  19. LENDORMIN [Concomitant]
     Route: 048
     Dates: start: 20090708
  20. DOGMATYL [Concomitant]
     Dosage: UNIT DOSE: 50 MG
     Route: 048
     Dates: start: 20090924
  21. CEPHARANTHIN [Concomitant]
     Dosage: UNIT DOSE: 1 MG
     Route: 048
     Dates: start: 20090924
  22. NOVAMIN [Concomitant]
     Dosage: UNIT DOSE: 5 MG
     Route: 048
     Dates: start: 20090924
  23. HIRUDOID [Concomitant]
     Indication: PROPHYLAXIS
     Route: 061
     Dates: start: 20091030

REACTIONS (7)
  - CARDIAC FAILURE [None]
  - CARDIAC FAILURE CONGESTIVE [None]
  - CHEST DISCOMFORT [None]
  - CONJUNCTIVITIS [None]
  - HEPATIC FUNCTION ABNORMAL [None]
  - HYPERTENSION [None]
  - THROMBOCYTOPENIA [None]
